FAERS Safety Report 20525516 (Version 1)
Quarter: 2022Q1

REPORT INFORMATION
  Report Type: Spontaneous
  Country: JP (occurrence: JP)
  Receive Date: 20220228
  Receipt Date: 20220228
  Transmission Date: 20220423
  Serious: Yes (Hospitalization, Other)
  Sender: FDA-Public Use
  Company Number: JP-GLAXOSMITHKLINE-JP2022JPN031775

PATIENT
  Age: 14 Year
  Sex: Male
  Weight: 41 kg

DRUGS (4)
  1. SERETIDE [Suspect]
     Active Substance: FLUTICASONE PROPIONATE\SALMETEROL XINAFOATE
     Indication: Asthma
     Dosage: 250 UG/DAY
  2. SERETIDE [Suspect]
     Active Substance: FLUTICASONE PROPIONATE\SALMETEROL XINAFOATE
     Dosage: 125 UG
  3. SERETIDE [Suspect]
     Active Substance: FLUTICASONE PROPIONATE\SALMETEROL XINAFOATE
     Dosage: 250 UG/DAY
  4. PROCATEROL HYDROCHLORIDE [Concomitant]
     Active Substance: PROCATEROL HYDROCHLORIDE
     Indication: Asthma
     Dosage: UNK, PRN

REACTIONS (16)
  - Diffuse panbronchiolitis [Unknown]
  - Hypoxia [Unknown]
  - Asthma [Unknown]
  - Cough [Unknown]
  - Dyspnoea exertional [Unknown]
  - Exercise tolerance decreased [Unknown]
  - Dyspnoea [Recovering/Resolving]
  - Use of accessory respiratory muscles [Recovering/Resolving]
  - Tachypnoea [Unknown]
  - Productive cough [Recovering/Resolving]
  - Wheezing [Recovering/Resolving]
  - Prolonged expiration [Recovering/Resolving]
  - Respiratory disorder [Unknown]
  - Prescribed overdose [Unknown]
  - Intentional overdose [Unknown]
  - Therapeutic product effect incomplete [Unknown]
